FAERS Safety Report 7674241-4 (Version None)
Quarter: 2011Q3

REPORT INFORMATION
  Report Type: 
  Country: None (occurrence: None)
  Receive Date: 20110810
  Receipt Date: 20110803
  Transmission Date: 20111222
  Serious: Yes (Hospitalization, Other)
  Sender: FDA-Public Use
  Company Number: US-ELI_LILLY_AND_COMPANY-US201005000631

PATIENT
  Sex: Male
  Weight: 129.25 kg

DRUGS (12)
  1. TYLENOL (CAPLET) [Concomitant]
  2. ATENOLOL [Concomitant]
     Dosage: 150 MG, EACH MORNING
  3. ANTIBIOTICS [Concomitant]
  4. LABETALOL HCL [Concomitant]
  5. BYETTA [Suspect]
     Indication: DIABETES MELLITUS
     Dosage: 5 UG, BID
     Route: 058
     Dates: start: 20060317, end: 20060820
  6. LANTUS [Concomitant]
     Indication: DIABETES MELLITUS
     Dosage: UNK
  7. GLUCOPHAGE [Concomitant]
     Dosage: 1000 MG, BID
     Route: 048
  8. HYDROCHLOROTHIAZIDE [Concomitant]
     Dosage: 25 MG, QD
     Route: 048
  9. ACTOS [Concomitant]
     Dosage: 45 MG, QD
     Route: 048
  10. GLIPIZIDE [Concomitant]
     Indication: DIABETES MELLITUS
     Dosage: 5 MG, BID
     Route: 048
  11. LISINOPRIL [Concomitant]
     Dosage: 20 MG, BID
  12. GLUCOTROL [Concomitant]
     Indication: DIABETES MELLITUS
     Route: 048

REACTIONS (6)
  - RENAL FAILURE [None]
  - MYOCARDIAL INFARCTION [None]
  - PANCREATITIS [None]
  - RENAL FAILURE ACUTE [None]
  - OFF LABEL USE [None]
  - CARDIAC FAILURE CONGESTIVE [None]
